FAERS Safety Report 17421189 (Version 1)
Quarter: 2020Q1

REPORT INFORMATION
  Report Type: Spontaneous
  Country: US (occurrence: US)
  Receive Date: 20200214
  Receipt Date: 20200214
  Transmission Date: 20200409
  Serious: Yes (Other)
  Sender: FDA-Public Use
  Company Number: US-SUNOVION-2020SUN000532

PATIENT
  Age: 54 Year
  Sex: Female

DRUGS (1)
  1. APTIOM [Suspect]
     Active Substance: ESLICARBAZEPINE ACETATE
     Indication: PARTIAL SEIZURES
     Dosage: 200 MG, BID (ONCE IN MORNING, ONCE AT NIGHT)
     Route: 048
     Dates: end: 20200210

REACTIONS (7)
  - Seizure [Not Recovered/Not Resolved]
  - Crying [Not Recovered/Not Resolved]
  - Swollen tongue [Not Recovered/Not Resolved]
  - Decreased activity [Not Recovered/Not Resolved]
  - Therapy cessation [Unknown]
  - Lip swelling [Not Recovered/Not Resolved]
  - Off label use [Unknown]

NARRATIVE: CASE EVENT DATE: 20200210
